FAERS Safety Report 9891223 (Version 1)
Quarter: 2014Q1

REPORT INFORMATION
  Report Type: Spontaneous
  Country: FR (occurrence: FR)
  Receive Date: 20140212
  Receipt Date: 20140212
  Transmission Date: 20141002
  Serious: Yes (Hospitalization)
  Sender: FDA-Public Use
  Company Number: FR-JNJFOC-20140205676

PATIENT
  Age: 81 Year
  Sex: Male

DRUGS (10)
  1. XARELTO [Suspect]
     Indication: CEREBROVASCULAR ACCIDENT PROPHYLAXIS
     Route: 048
     Dates: start: 201109, end: 20130220
  2. XARELTO [Suspect]
     Indication: ATRIAL FIBRILLATION
     Route: 048
     Dates: start: 201109, end: 20130220
  3. KENZEN [Concomitant]
     Route: 048
  4. ESIDREX [Concomitant]
     Route: 048
     Dates: start: 201012
  5. PARIET [Concomitant]
     Route: 048
  6. KARDEGIC [Concomitant]
     Route: 048
  7. ATENOLOL [Concomitant]
     Route: 048
  8. LAROXYL [Concomitant]
     Route: 048
  9. BEFIZAL [Concomitant]
     Route: 048
  10. VASTAREL [Concomitant]
     Route: 048

REACTIONS (1)
  - Renal failure chronic [Recovered/Resolved]
